FAERS Safety Report 13527189 (Version 1)
Quarter: 2017Q2

REPORT INFORMATION
  Report Type: Spontaneous
  Country: GB (occurrence: GB)
  Receive Date: 20170509
  Receipt Date: 20170509
  Transmission Date: 20170830
  Serious: Yes (Other)
  Sender: FDA-Public Use
  Company Number: GB-TEVA-764536ACC

PATIENT
  Age: 50 Year
  Sex: Male
  Weight: 69.85 kg

DRUGS (4)
  1. PRAMIPEXOLE. [Suspect]
     Active Substance: PRAMIPEXOLE
     Indication: RESTLESS LEGS SYNDROME
     Route: 048
     Dates: start: 2013, end: 2013
  2. PRAMIPEXOLE. [Suspect]
     Active Substance: PRAMIPEXOLE
     Indication: RESTLESS LEGS SYNDROME
     Dosage: PRESCRIBED 2 LARGE TABLETS A DAY.
     Route: 048
     Dates: start: 2017, end: 2017
  3. PRAMIPEXOLE. [Suspect]
     Active Substance: PRAMIPEXOLE
     Indication: RESTLESS LEGS SYNDROME
     Dosage: PRESCRIBED 6 TABLETS A DAY
     Route: 048
     Dates: start: 2013, end: 2017
  4. PRAMIPEXOLE. [Suspect]
     Active Substance: PRAMIPEXOLE
     Indication: RESTLESS LEGS SYNDROME
     Route: 048
     Dates: start: 2017, end: 20170323

REACTIONS (2)
  - Malaise [Unknown]
  - Factitious disorder [Recovered/Resolved with Sequelae]

NARRATIVE: CASE EVENT DATE: 2013
